FAERS Safety Report 24432687 (Version 1)
Quarter: 2024Q4

REPORT INFORMATION
  Report Type: Spontaneous
  Country: IT (occurrence: IT)
  Receive Date: 20241014
  Receipt Date: 20241014
  Transmission Date: 20250115
  Serious: Yes (Other)
  Sender: AUROBINDO
  Company Number: IT-AUROBINDO-AUR-APL-2024-048745

PATIENT
  Age: 52 Year
  Sex: Male

DRUGS (2)
  1. AMIODARONE [Suspect]
     Active Substance: AMIODARONE
     Indication: Ventricular tachycardia
     Dosage: UNK
     Route: 048
  2. MEXILETINE [Suspect]
     Active Substance: MEXILETINE
     Indication: Ventricular tachycardia
     Dosage: UNK
     Route: 048

REACTIONS (1)
  - Drug ineffective [Unknown]
